FAERS Safety Report 6583720-2 (Version None)
Quarter: 2010Q1

REPORT INFORMATION
  Report Type: 
  Country: None (occurrence: None)
  Receive Date: 20100213
  Receipt Date: 20100213
  Transmission Date: 20100710
  Serious: Yes (Death, Hospitalization)
  Sender: FDA-Public Use
  Company Number: None

PATIENT
  Age: 55 Year
  Sex: Female
  Weight: 60 kg

DRUGS (1)
  1. ISOFLURANE [Suspect]
     Indication: GENERAL ANAESTHESIA
     Dosage: INTRATRACHEAL 039
     Route: 039
     Dates: start: 19981201

REACTIONS (5)
  - ABDOMINAL PAIN [None]
  - COAGULOPATHY [None]
  - JAUNDICE [None]
  - MENTAL STATUS CHANGES [None]
  - NAUSEA [None]
